FAERS Safety Report 13511555 (Version 1)
Quarter: 2017Q2

REPORT INFORMATION
  Report Type: Spontaneous
  Country: CA (occurrence: CA)
  Receive Date: 20170504
  Receipt Date: 20170504
  Transmission Date: 20170830
  Serious: Yes (Death)
  Sender: FDA-Public Use
  Company Number: CA-TEVA-765220ACC

PATIENT
  Age: 89 Year
  Sex: Female

DRUGS (2)
  1. WARFARIN [Suspect]
     Active Substance: WARFARIN
     Indication: ANTICOAGULANT THERAPY
  2. WARFARIN [Suspect]
     Active Substance: WARFARIN
     Route: 065

REACTIONS (11)
  - Liver disorder [Fatal]
  - Accidental overdose [Fatal]
  - Drug dispensing error [Fatal]
  - Dyspnoea [Fatal]
  - Oxygen saturation decreased [Fatal]
  - Pulmonary haemorrhage [Fatal]
  - Cardiac disorder [Fatal]
  - International normalised ratio increased [Fatal]
  - General physical health deterioration [Fatal]
  - Respiratory failure [Fatal]
  - Lung infiltration [Fatal]
